FAERS Safety Report 9052388 (Version 1)
Quarter: 2013Q1

REPORT INFORMATION
  Report Type: Report from Study
  Country: JP (occurrence: JP)
  Receive Date: 20130207
  Receipt Date: 20130207
  Transmission Date: 20140127
  Serious: Yes (Hospitalization, Other)
  Sender: FDA-Public Use
  Company Number: JP-009507513-2012SP027736

PATIENT
  Age: 67 Year
  Sex: Male
  Weight: 57 kg

DRUGS (17)
  1. PEGINTRON [Suspect]
     Indication: CHRONIC HEPATITIS C
     Dosage: 80 MICROGRAM, QW
     Route: 058
     Dates: start: 20120403, end: 20120515
  2. PEGINTRON [Suspect]
     Dosage: 0.75 MICROGRAM PER KILOGRAM, QW
     Route: 058
     Dates: start: 20120516
  3. REBETOL [Suspect]
     Indication: CHRONIC HEPATITIS C
     Dosage: 600 MG, QD
     Route: 048
     Dates: start: 20120403, end: 20120416
  4. REBETOL [Suspect]
     Dosage: 400 MG, QD
     Route: 048
     Dates: start: 20120417, end: 20120425
  5. REBETOL [Suspect]
     Dosage: 200 MG, QD
     Route: 048
     Dates: start: 20120426
  6. TELAVIC [Suspect]
     Indication: CHRONIC HEPATITIS C
     Dosage: 2250 MG, QD
     Route: 048
     Dates: start: 20120404, end: 20120514
  7. LOXONIN [Concomitant]
     Indication: PROPHYLAXIS
     Dosage: FORMULATION: POR
     Route: 048
     Dates: start: 20120404
  8. MUCOSTA [Concomitant]
     Indication: PROPHYLAXIS
     Dosage: UPDATE(15JUN2012):FORMULATION: POR
     Route: 048
     Dates: start: 20120404
  9. LENDORMIN [Concomitant]
     Indication: PROPHYLAXIS
     Dosage: UPDATE(15JUN2012): FORMULATION: POR
     Route: 048
     Dates: start: 20120404
  10. TAKEPRON [Concomitant]
     Indication: PROPHYLAXIS
     Dosage: UPDATE(15JUN2012): FORMULATION: POR
     Route: 048
     Dates: start: 20120404
  11. MARZULENE-S [Concomitant]
     Indication: PROPHYLAXIS
     Dosage: UPDATE(15JUN2012): FORMULATION: POR
     Route: 048
     Dates: start: 20120404
  12. [COMPOSITION UNSPECIFIED] [Concomitant]
     Dosage: UPDATE(15JUN2012):
     Route: 048
  13. AMLODIN (AMLODIPINE BESYLATE) [Concomitant]
     Indication: HYPERTENSION
     Dosage: UPDATE(15JUN2012): FORMULATION: POR
     Route: 048
     Dates: start: 20120404
  14. MEYLON [Concomitant]
     Indication: PROPHYLAXIS
     Dosage: UPDATE(15JUN2012)
     Route: 042
     Dates: start: 20120521, end: 20120521
  15. JANUVIA TABLETS 50MG [Concomitant]
     Indication: DIABETES MELLITUS
     Dosage: 50 MG, QD,FORMULATION:POR
     Route: 048
     Dates: start: 20120404
  16. PHYSIO 35 [Concomitant]
     Indication: PROPHYLAXIS
     Dosage: 500 ML, QD
     Route: 042
  17. LACTEC G [Concomitant]
     Indication: PROPHYLAXIS
     Dosage: 500 ML, QD
     Route: 042

REACTIONS (4)
  - Malaise [Recovered/Resolved]
  - Vomiting [Unknown]
  - Renal impairment [Recovered/Resolved]
  - Dizziness [Recovered/Resolved]
